FAERS Safety Report 6819444-3 (Version None)
Quarter: 2010Q3

REPORT INFORMATION
  Report Type: 
  Country: None (occurrence: None)
  Receive Date: 20100707
  Receipt Date: 20100628
  Transmission Date: 20110219
  Serious: Yes (Death, Other)
  Sender: FDA-Public Use
  Company Number: US-NAPPMUNDI-USA-2010-0044629

PATIENT
  Age: 49 Year
  Sex: Male

DRUGS (4)
  1. OXYCODONE HCL [Suspect]
     Indication: DRUG ABUSE
  2. ALCOHOL [Suspect]
     Indication: ALCOHOL USE
  3. METHADONE [Suspect]
     Indication: DRUG ABUSE
  4. ALPRAZOLAM [Suspect]
     Indication: DRUG ABUSE

REACTIONS (2)
  - DEATH [None]
  - SUBSTANCE ABUSE [None]
